FAERS Safety Report 10013385 (Version 2)
Quarter: 2014Q1

REPORT INFORMATION
  Report Type: Spontaneous
  Country: US (occurrence: US)
  Receive Date: 20140314
  Receipt Date: 20140314
  Transmission Date: 20141002
  Serious: No
  Sender: FDA-Public Use
  Company Number: US-ASTRAZENECA-2013SE63531

PATIENT
  Age: 56 Year
  Sex: Female
  Weight: 81.6 kg

DRUGS (8)
  1. NEXIUM [Suspect]
     Indication: GASTROOESOPHAGEAL REFLUX DISEASE
     Route: 048
     Dates: start: 2003, end: 201212
  2. NEXIUM [Suspect]
     Indication: GASTROOESOPHAGEAL REFLUX DISEASE
     Route: 048
     Dates: start: 201212, end: 20130809
  3. HYZAAR [Concomitant]
     Indication: BLOOD PRESSURE ABNORMAL
     Dosage: 100/25MG DAILY
     Route: 048
     Dates: start: 2011
  4. IBUPROFEN [Concomitant]
     Indication: PAIN
     Route: 048
     Dates: start: 2003
  5. TYLENOL ARTHRITIS FORMULA [Concomitant]
     Indication: PAIN
     Route: 048
     Dates: start: 2012
  6. ADVIL [Concomitant]
     Indication: PAIN
     Dosage: UNKNOWN PRN
     Route: 048
  7. ROBAXIN [Concomitant]
     Indication: MUSCLE SPASMS
     Route: 048
     Dates: start: 201301
  8. ALBUTEROL VENTOLIN [Concomitant]
     Indication: ASTHMA
     Dosage: UNKNOWN PRN
     Route: 055

REACTIONS (10)
  - Blood pressure abnormal [Unknown]
  - Dyspnoea [Recovered/Resolved]
  - Tonsillar inflammation [Unknown]
  - Polyp [Recovered/Resolved]
  - Pain [Not Recovered/Not Resolved]
  - Muscle spasms [Not Recovered/Not Resolved]
  - Dyspepsia [Not Recovered/Not Resolved]
  - Gastrooesophageal reflux disease [Unknown]
  - Drug dose omission [Not Recovered/Not Resolved]
  - Intentional drug misuse [Unknown]
